FAERS Safety Report 9918013 (Version 1)
Quarter: 2014Q1

REPORT INFORMATION
  Report Type: Spontaneous
  Country: US (occurrence: US)
  Receive Date: 20140222
  Receipt Date: 20140222
  Transmission Date: 20141002
  Serious: Yes (Disabling)
  Sender: FDA-Public Use
  Company Number: US-GE HEALTHCARE MEDICAL DIAGNOSTICS-OSCN-PR-0811S-0601

PATIENT
  Age: 55 Year
  Sex: Male

DRUGS (7)
  1. OMNISCAN [Suspect]
     Indication: LIP SQUAMOUS CELL CARCINOMA
     Route: 042
     Dates: start: 20010604, end: 20010604
  2. OMNISCAN [Suspect]
     Indication: PANCREATIC DUCT DILATATION
     Dates: start: 20040206, end: 20040206
  3. OMNISCAN [Suspect]
     Dates: start: 20051020, end: 20051020
  4. MAGNEVIST [Suspect]
     Indication: KIDNEY TRANSPLANT REJECTION
     Route: 042
     Dates: start: 20051213, end: 20051213
  5. MAGNEVIST [Suspect]
     Indication: COMPLICATIONS OF TRANSPLANTED KIDNEY
     Route: 042
     Dates: start: 20060222, end: 20060222
  6. MAGNEVIST [Suspect]
     Dates: start: 20060622, end: 20060622
  7. OMNIPAQUE [Concomitant]

REACTIONS (1)
  - Nephrogenic systemic fibrosis [Not Recovered/Not Resolved]
